FAERS Safety Report 7609281-4 (Version None)
Quarter: 2011Q3

REPORT INFORMATION
  Report Type: 
  Country: None (occurrence: None)
  Receive Date: 20110714
  Receipt Date: 20110711
  Transmission Date: 20111222
  Serious: Yes (Hospitalization, Other)
  Sender: FDA-Public Use
  Company Number: US-PFIZER INC-2011069789

PATIENT
  Sex: Male

DRUGS (8)
  1. AMBIEN [Concomitant]
     Indication: INSOMNIA
     Dosage: UNK
     Dates: start: 20050101, end: 20090101
  2. SEROQUEL [Concomitant]
     Indication: ANXIETY
     Dosage: UNK
     Dates: start: 20050101
  3. TRICOR [Concomitant]
     Indication: BLOOD CHOLESTEROL
     Dosage: UNK
     Dates: start: 20050101
  4. LIPITOR [Concomitant]
     Indication: MYOCARDIAL INFARCTION
     Dosage: UNK
     Dates: start: 20050101, end: 20090101
  5. SEROQUEL [Concomitant]
     Indication: SLEEP DISORDER
  6. CHANTIX [Suspect]
     Indication: SMOKING CESSATION THERAPY
     Dosage: STARTER MONTH PACK 0.5 MG AND 1 MG CONTINUING PACK
     Route: 048
     Dates: start: 20061201, end: 20070101
  7. LIPITOR [Concomitant]
     Indication: CEREBROVASCULAR ACCIDENT PROPHYLAXIS
  8. TEMAZEPAM [Concomitant]
     Indication: INSOMNIA
     Dosage: UNK
     Dates: start: 20050101, end: 20080101

REACTIONS (2)
  - BACK INJURY [None]
  - LOSS OF CONSCIOUSNESS [None]
